FAERS Safety Report 26173081 (Version 1)
Quarter: 2025Q4

REPORT INFORMATION
  Report Type: Spontaneous
  Country: EU (occurrence: EU)
  Receive Date: 20251218
  Receipt Date: 20251218
  Transmission Date: 20260117
  Serious: Yes (Other)
  Sender: ALKEM
  Company Number: None

PATIENT
  Age: 65 Year
  Sex: Male
  Weight: 63 kg

DRUGS (18)
  1. EZETIMIBE [Suspect]
     Active Substance: EZETIMIBE
     Indication: Coronary artery disease
     Dosage: UNK
     Route: 048
     Dates: start: 20110401, end: 20220601
  2. ATORVASTATIN CALCIUM [Suspect]
     Active Substance: ATORVASTATIN CALCIUM
     Indication: Arteriosclerosis
     Dosage: UNK
     Route: 048
  3. ATORVASTATIN CALCIUM [Suspect]
     Active Substance: ATORVASTATIN CALCIUM
     Indication: Coronary artery disease
  4. ROSUVASTATIN [Suspect]
     Active Substance: ROSUVASTATIN
     Indication: Arteriosclerosis
     Dosage: UNK
     Route: 065
  5. ROSUVASTATIN [Suspect]
     Active Substance: ROSUVASTATIN
     Indication: Coronary artery disease
  6. UNSPECIFIED INGREDIENT [Suspect]
     Active Substance: UNSPECIFIED INGREDIENT
     Indication: Arteriosclerosis
     Dosage: UNK
     Route: 048
     Dates: start: 20110401, end: 20230401
  7. UNSPECIFIED INGREDIENT [Suspect]
     Active Substance: UNSPECIFIED INGREDIENT
     Indication: Coronary artery disease
  8. UNSPECIFIED INGREDIENT [Suspect]
     Active Substance: UNSPECIFIED INGREDIENT
     Indication: Infarction
  9. ALIROCUMAB [Suspect]
     Active Substance: ALIROCUMAB
     Indication: Coronary artery disease
     Dosage: UNK
     Route: 058
     Dates: start: 20230301, end: 20230901
  10. BEMPEDOIC ACID [Suspect]
     Active Substance: BEMPEDOIC ACID
     Indication: Coronary artery disease
     Dosage: UNK
     Route: 048
     Dates: start: 20220401, end: 20220601
  11. FLUVASTATIN [Suspect]
     Active Substance: FLUVASTATIN SODIUM
     Indication: Arteriosclerosis
     Dosage: UNK
     Route: 065
  12. FLUVASTATIN [Suspect]
     Active Substance: FLUVASTATIN SODIUM
     Indication: Coronary artery disease
  13. PRALUENT [Suspect]
     Active Substance: ALIROCUMAB
     Indication: Hypercholesterolaemia
     Dosage: UNK
     Route: 058
     Dates: start: 20230301, end: 20230901
  14. PRAVASTATIN [Suspect]
     Active Substance: PRAVASTATIN
     Indication: Arteriosclerosis
     Dosage: UNK
     Route: 048
  15. PRAVASTATIN [Suspect]
     Active Substance: PRAVASTATIN
     Indication: Coronary artery disease
  16. SIMVASTATIN [Suspect]
     Active Substance: SIMVASTATIN
     Indication: Arteriosclerosis
     Dosage: UNK
     Route: 048
  17. SIMVASTATIN [Suspect]
     Active Substance: SIMVASTATIN
     Indication: Coronary artery disease
  18. SIMVASTATIN [Suspect]
     Active Substance: SIMVASTATIN
     Indication: Infarction

REACTIONS (3)
  - Necrotising myositis [Unknown]
  - Blood creatine phosphokinase increased [Recovered/Resolved]
  - Myopathy [Recovered/Resolved]

NARRATIVE: CASE EVENT DATE: 20230101
